FAERS Safety Report 6283171-4 (Version None)
Quarter: 2009Q3

REPORT INFORMATION
  Report Type: 
  Country: None (occurrence: None)
  Receive Date: 20090724
  Receipt Date: 20090715
  Transmission Date: 20100115
  Serious: Yes (Hospitalization)
  Sender: FDA-Public Use
  Company Number: B0584067A

PATIENT
  Sex: Male

DRUGS (11)
  1. ARIXTRA [Suspect]
     Indication: DRUG USE FOR UNKNOWN INDICATION
     Route: 058
     Dates: start: 20090427, end: 20090519
  2. TAZOCILLINE [Suspect]
     Indication: SKIN ULCER
     Dosage: 4G THREE TIMES PER DAY
     Route: 042
     Dates: start: 20090427, end: 20090518
  3. CIFLOX [Suspect]
     Indication: SKIN ULCER
     Dosage: 250MG TWICE PER DAY
     Route: 048
     Dates: start: 20090427, end: 20090518
  4. PLAVIX [Concomitant]
     Indication: DRUG USE FOR UNKNOWN INDICATION
     Dosage: 75MG PER DAY
     Route: 065
     Dates: start: 20090427
  5. NEXIUM [Concomitant]
     Indication: DRUG USE FOR UNKNOWN INDICATION
     Dosage: 20MG PER DAY
     Route: 065
     Dates: start: 20090427
  6. SEVREDOL [Concomitant]
     Indication: DRUG USE FOR UNKNOWN INDICATION
     Dosage: 10MG AS REQUIRED
     Route: 065
     Dates: start: 20090427
  7. TAREG [Concomitant]
     Indication: DRUG USE FOR UNKNOWN INDICATION
     Dosage: 80MG TWICE PER DAY
     Route: 065
     Dates: start: 20090427
  8. OSMOTAN 5% [Concomitant]
     Indication: DRUG USE FOR UNKNOWN INDICATION
     Route: 065
     Dates: start: 20090429
  9. ATARAX [Concomitant]
     Indication: DRUG USE FOR UNKNOWN INDICATION
     Dosage: 100MG SINGLE DOSE
     Route: 048
     Dates: start: 20090518, end: 20090518
  10. CONTRAST SOLUTION [Concomitant]
     Indication: NUCLEAR MAGNETIC RESONANCE IMAGING
     Route: 065
     Dates: start: 20090515, end: 20090518
  11. CRESTOR [Concomitant]
     Indication: DRUG USE FOR UNKNOWN INDICATION
     Dosage: 5MG PER DAY
     Route: 065
     Dates: start: 20090427

REACTIONS (6)
  - BICYTOPENIA [None]
  - CHILLS [None]
  - FEBRILE NEUTROPENIA [None]
  - LEUKOPENIA [None]
  - PYREXIA [None]
  - THROMBOCYTOPENIA [None]
